FAERS Safety Report 4972281-7 (Version None)
Quarter: 2006Q1

REPORT INFORMATION
  Report Type: 
  Country: None (occurrence: None)
  Receive Date: 20060213
  Receipt Date: 20051123
  Transmission Date: 20060701
  Serious: No
  Sender: FDA-Public Use
  Company Number: 012049

PATIENT
  Age: 53 Year
  Sex: Male

DRUGS (14)
  1. PRIALT [Suspect]
     Indication: PAIN
     Dosage: SEE IMAGE
     Route: 037
     Dates: start: 20050701, end: 20051122
  2. PRIALT [Suspect]
     Indication: PAIN
     Dosage: SEE IMAGE
     Route: 037
     Dates: start: 20051122
  3. PRIALT [Suspect]
     Indication: PAIN
     Dosage: SEE IMAGE
     Route: 037
     Dates: start: 20051122
  4. LEVAQUIN [Suspect]
     Indication: DRUG USE FOR UNKNOWN INDICATION
     Dosage: 750 MG, ONCE/DAY
  5. NEURONTIN [Concomitant]
  6. DILAUDID [Concomitant]
  7. CELEBREX [Concomitant]
  8. TRAZODONE HCL [Concomitant]
  9. CELEXA [Concomitant]
  10. ZYRTEC /00884302/ (CETIRIZINE HYDROCHLORIDE) [Concomitant]
  11. AMBIEN [Concomitant]
  12. LORAZEPAM [Concomitant]
  13. CLONIDINE [Concomitant]
  14. CLONIDINE [Concomitant]

REACTIONS (7)
  - ABDOMINAL PAIN UPPER [None]
  - DYSGEUSIA [None]
  - DYSLEXIA [None]
  - MENTAL IMPAIRMENT [None]
  - NOCTURIA [None]
  - RED BLOOD CELL COUNT DECREASED [None]
  - VISION BLURRED [None]
